FAERS Safety Report 16776872 (Version 2)
Quarter: 2019Q3

REPORT INFORMATION
  Report Type: Spontaneous
  Country: US (occurrence: US)
  Receive Date: 20190905
  Receipt Date: 20190918
  Transmission Date: 20191005
  Serious: No
  Sender: FDA-Public Use
  Company Number: US-CELGENEUS-USA-20190809581

PATIENT
  Age: 49 Year
  Sex: Female

DRUGS (3)
  1. OTEZLA [Suspect]
     Active Substance: APREMILAST
     Indication: PALMOPLANTAR PUSTULOSIS
     Dosage: 60 MILLIGRAM
     Route: 048
     Dates: start: 20190509
  2. OTEZLA [Suspect]
     Active Substance: APREMILAST
     Indication: PSORIASIS
  3. MULTIVITAMIN [Concomitant]
     Active Substance: VITAMINS
     Indication: PRODUCT USED FOR UNKNOWN INDICATION
     Route: 048

REACTIONS (4)
  - Psoriasis [Recovered/Resolved]
  - Nausea [Recovered/Resolved]
  - Headache [Recovered/Resolved]
  - Road traffic accident [Recovered/Resolved]

NARRATIVE: CASE EVENT DATE: 201908
